FAERS Safety Report 9364156 (Version 1)
Quarter: 2013Q2

REPORT INFORMATION
  Report Type: Spontaneous
  Country: US (occurrence: US)
  Receive Date: 20130624
  Receipt Date: 20130624
  Transmission Date: 20140414
  Serious: No
  Sender: FDA-Public Use
  Company Number: US-BAYER-2013-076284

PATIENT
  Age: 56 Year
  Sex: Female

DRUGS (9)
  1. NEXAVAR [Suspect]
     Indication: METASTATIC RENAL CELL CARCINOMA
     Dosage: UNK
     Dates: end: 20130606
  2. ALEVE [Concomitant]
     Dosage: 2 DF (2-3 TIMES PER DAY)
  3. LAETRILE [Concomitant]
  4. ZOFRAN [Concomitant]
  5. MS CONTIN [Concomitant]
  6. PERCOCET [Concomitant]
  7. ZANTAC [Concomitant]
  8. IRON [Concomitant]
  9. SUTENT [Concomitant]
     Dosage: 50 MG/DAY
     Dates: start: 20130607

REACTIONS (7)
  - Dysgeusia [Not Recovered/Not Resolved]
  - Glossitis [Not Recovered/Not Resolved]
  - Glossodynia [Not Recovered/Not Resolved]
  - Rash [Not Recovered/Not Resolved]
  - Decreased appetite [Not Recovered/Not Resolved]
  - Dry skin [Not Recovered/Not Resolved]
  - Nausea [Not Recovered/Not Resolved]
